FAERS Safety Report 5199551-4 (Version None)
Quarter: 2006Q4

REPORT INFORMATION
  Report Type: 
  Country: None (occurrence: None)
  Receive Date: 20061229
  Receipt Date: 20061220
  Transmission Date: 20070319
  Serious: Yes (Hospitalization, Other)
  Sender: FDA-Public Use
  Company Number: 2006RR-05013

PATIENT
  Age: 28 Year
  Sex: Male

DRUGS (14)
  1. CIPROFLOXACIN [Suspect]
     Indication: CHOLANGITIS SUPPURATIVE
     Dosage: SEE IMAGE
  2. METRONIDAZOLE [Concomitant]
  3. CEFAZOLIN [Concomitant]
  4. GRAVOL TAB [Concomitant]
  5. URSODEOXYCHOLIC ACID [Concomitant]
  6. FOLIC ACID [Concomitant]
  7. SULFASALAZINE [Concomitant]
  8. PIPERACILLIN-PLUS-TAZOBACTAM [Concomitant]
  9. THIAMINE [Concomitant]
  10. ACYCLOVIR [Concomitant]
  11. HALOPERIDOL [Concomitant]
  12. LORAZEPAM [Concomitant]
  13. OLANZAPINE [Concomitant]
  14. ZOPICLONE (ZOPICLONE) [Concomitant]

REACTIONS (9)
  - AGGRESSION [None]
  - AGITATION [None]
  - DELIRIUM [None]
  - DELUSION [None]
  - GRANDIOSITY [None]
  - HEPATIC ENZYME INCREASED [None]
  - IRRITABILITY [None]
  - MANIA [None]
  - MOOD ALTERED [None]
